FAERS Safety Report 4699129-2 (Version None)
Quarter: 2005Q2

REPORT INFORMATION
  Report Type: 
  Country: None (occurrence: None)
  Receive Date: 20050624
  Receipt Date: 20050620
  Transmission Date: 20051028
  Serious: Yes (Death, Hospitalization)
  Sender: FDA-Public Use
  Company Number: 200515738GDDC

PATIENT
  Age: 64 Year
  Sex: Female
  Weight: 74 kg

DRUGS (4)
  1. TAXOTERE [Suspect]
     Indication: NON-SMALL CELL LUNG CANCER
     Route: 042
     Dates: start: 20050526, end: 20050526
  2. CISPLATIN [Suspect]
     Indication: NON-SMALL CELL LUNG CANCER
     Dosage: DOSE: UNK
  3. ETOPOSIDE [Suspect]
     Indication: NON-SMALL CELL LUNG CANCER
     Dosage: DOSE: UNK
  4. RADIOTHERAPY [Suspect]
     Indication: NON-SMALL CELL LUNG CANCER
     Dosage: DOSE: UNK

REACTIONS (11)
  - BLOOD PRESSURE DIASTOLIC INCREASED [None]
  - BODY TEMPERATURE INCREASED [None]
  - DEATH [None]
  - ELECTROCARDIOGRAM ST-T CHANGE [None]
  - HEART RATE INCREASED [None]
  - METABOLIC ACIDOSIS [None]
  - PNEUMONIA [None]
  - PULMONARY MASS [None]
  - RENAL FAILURE [None]
  - RESPIRATORY DISTRESS [None]
  - RESPIRATORY RATE INCREASED [None]
